FAERS Safety Report 5103932-4 (Version None)
Quarter: 2006Q3

REPORT INFORMATION
  Report Type: 
  Country: None (occurrence: None)
  Receive Date: 20060913
  Receipt Date: 20060905
  Transmission Date: 20061208
  Serious: Yes (Death)
  Sender: FDA-Public Use
  Company Number: US-JNJFOC-20060901826

PATIENT
  Age: 12 Month
  Sex: Female

DRUGS (4)
  1. TRAMADOL HCL [Suspect]
     Indication: UNEVALUABLE EVENT
     Route: 048
  2. TIZANIDINE HCL [Suspect]
     Indication: UNEVALUABLE EVENT
     Route: 048
  3. ACETAMINOPHEN AND HYDROCODONE BITARTRATE [Suspect]
     Indication: UNEVALUABLE EVENT
     Route: 048
  4. MIRTAZAPINE [Suspect]
     Indication: DRUG USE FOR UNKNOWN INDICATION

REACTIONS (3)
  - ACCIDENTAL EXPOSURE [None]
  - CARDIO-RESPIRATORY ARREST [None]
  - CONVULSION [None]
